FAERS Safety Report 23994824 (Version 1)
Quarter: 2024Q2

REPORT INFORMATION
  Report Type: Spontaneous
  Country: IL (occurrence: IL)
  Receive Date: 20240620
  Receipt Date: 20240620
  Transmission Date: 20240716
  Serious: Yes (Other)
  Sender: FDA-Public Use
  Company Number: IL-TAKEDA-2024TUS056737

PATIENT
  Age: 14 Year
  Sex: Male

DRUGS (4)
  1. ADCETRIS [Suspect]
     Active Substance: BRENTUXIMAB VEDOTIN
     Dosage: 128 MG
     Dates: start: 20230315
  2. SULFAMETHOXAZOLE\TRIMETHOPRIM [Concomitant]
     Active Substance: SULFAMETHOXAZOLE\TRIMETHOPRIM
     Dosage: UNK
  3. GABAPENTIN [Concomitant]
     Active Substance: GABAPENTIN
     Dosage: UNK
  4. ZOVIRAX [Concomitant]
     Active Substance: ACYCLOVIR
     Dosage: UNK

REACTIONS (6)
  - Axonal and demyelinating polyneuropathy [Unknown]
  - Demyelinating polyneuropathy [Unknown]
  - Muscular weakness [Unknown]
  - Areflexia [Unknown]
  - Peroneal nerve palsy [Unknown]
  - Peroneal nerve injury [Unknown]
